FAERS Safety Report 8991746 (Version 1)
Quarter: 2012Q4

REPORT INFORMATION
  Report Type: 
  Country: GB (occurrence: GB)
  Receive Date: 20121231
  Receipt Date: 20121231
  Transmission Date: 20130627
  Serious: Yes (Hospitalization, Other)
  Sender: FDA-Public Use
  Company Number: GB-009507513-1212GBR011133

PATIENT
  Age: 57 Year
  Sex: Male
  Weight: 71.4 kg

DRUGS (3)
  1. BCG LIVE [Suspect]
     Indication: CHEMOTHERAPY
     Dosage: UNK
     Dates: start: 20121206, end: 20121206
  2. ACETAMINOPHEN [Concomitant]
  3. TRIMETHOPRIM [Concomitant]

REACTIONS (2)
  - Neutropenia [Not Recovered/Not Resolved]
  - Liver function test abnormal [Not Recovered/Not Resolved]
